FAERS Safety Report 24105235 (Version 1)
Quarter: 2024Q3

REPORT INFORMATION
  Report Type: Spontaneous
  Country: UY (occurrence: UY)
  Receive Date: 20240717
  Receipt Date: 20240717
  Transmission Date: 20241017
  Serious: Yes (Life-Threatening, Hospitalization, Other)
  Sender: FRESENIUS KABI
  Company Number: UY-FreseniusKabi-FK202410962

PATIENT
  Age: 29 Year
  Sex: Female

DRUGS (1)
  1. OXYTOCIN [Suspect]
     Active Substance: OXYTOCIN
     Indication: Obstetrical procedure
     Dosage: PHARMACEUTICAL FORM: INJECTABLE SOLUTION 5IU/1 ML?SITE WHERE THE DRUG WAS ADMINISTERED: SURGICAL BLO
     Route: 042
     Dates: start: 20240629, end: 20240629

REACTIONS (2)
  - Uterine atony [Recovering/Resolving]
  - Maternal exposure during delivery [Unknown]

NARRATIVE: CASE EVENT DATE: 20240629
